FAERS Safety Report 7318890-1 (Version None)
Quarter: 2011Q1

REPORT INFORMATION
  Report Type: 
  Country: None (occurrence: None)
  Receive Date: 20110216
  Receipt Date: 20110202
  Transmission Date: 20110831
  Serious: Yes (Other)
  Sender: FDA-Public Use
  Company Number: 2011000035

PATIENT
  Age: 70 Year
  Sex: Male
  Weight: 96.4 kg

DRUGS (1)
  1. TARCEVA [Suspect]
     Indication: NON-SMALL CELL LUNG CANCER METASTATIC
     Dosage: 150 MG, QD, ORAL
     Route: 048
     Dates: start: 20101101

REACTIONS (5)
  - CHEST PAIN [None]
  - DIARRHOEA [None]
  - ASPARTATE AMINOTRANSFERASE INCREASED [None]
  - RASH [None]
  - ALANINE AMINOTRANSFERASE INCREASED [None]
